FAERS Safety Report 7926203-7 (Version None)
Quarter: 2011Q4

REPORT INFORMATION
  Report Type: 
  Country: None (occurrence: None)
  Receive Date: 20111118
  Receipt Date: 20111103
  Transmission Date: 20120403
  Serious: No
  Sender: FDA-Public Use
  Company Number: US-AMGEN-USASP2011017847

PATIENT
  Age: 61 Year
  Sex: Female

DRUGS (3)
  1. TREXALL [Concomitant]
  2. ENBREL [Suspect]
     Indication: PSORIATIC ARTHROPATHY
     Dosage: 50 MG, QWK
     Dates: start: 20110317
  3. ENBREL [Suspect]
     Indication: PSORIASIS
     Dates: start: 20110324

REACTIONS (13)
  - DYSPNOEA [None]
  - PSORIASIS [None]
  - PARANASAL SINUS HYPERSECRETION [None]
  - PSORIATIC ARTHROPATHY [None]
  - PAIN [None]
  - ARTHRALGIA [None]
  - PAIN IN EXTREMITY [None]
  - FATIGUE [None]
  - BACK PAIN [None]
  - DRUG INEFFECTIVE [None]
  - HEADACHE [None]
  - SINUS HEADACHE [None]
  - JOINT LOCK [None]
